FAERS Safety Report 20486573 (Version 5)
Quarter: 2022Q1

REPORT INFORMATION
  Report Type: Spontaneous
  Country: JP (occurrence: JP)
  Receive Date: 20220217
  Receipt Date: 20220316
  Transmission Date: 20220423
  Serious: Yes (Hospitalization, Other)
  Sender: FDA-Public Use
  Company Number: JP-PFIZER INC-202200176635

PATIENT
  Age: 82 Year
  Sex: Male
  Weight: 70 kg

DRUGS (16)
  1. IBRANCE [Suspect]
     Active Substance: PALBOCICLIB
     Indication: Breast cancer male
     Dosage: 75 MG, 1X/DAY
     Route: 048
     Dates: start: 202101, end: 202201
  2. MIYA-BM [Concomitant]
     Active Substance: CLOSTRIDIUM BUTYRICUM SPORES STRAIN M-55
     Dosage: UNK
  3. METOCLOPRAMIDE [Concomitant]
     Active Substance: METOCLOPRAMIDE
     Dosage: UNK
  4. CAMOSTAT MESYLATE [Concomitant]
     Active Substance: CAMOSTAT MESYLATE
     Dosage: UNK
  5. MAGNESIUM OXIDE [Concomitant]
     Active Substance: MAGNESIUM OXIDE
     Dosage: UNK
  6. METHYLCOBALAMIN [Concomitant]
     Active Substance: METHYLCOBALAMIN
     Dosage: UNK
  7. SENNOSIDES A AND B [Concomitant]
     Active Substance: SENNOSIDES A AND B
     Dosage: UNK
  8. HYALURONATE SODIUM [Concomitant]
     Active Substance: HYALURONATE SODIUM
     Dosage: UNK
  9. ALPHAGAN P [Concomitant]
     Active Substance: BRIMONIDINE TARTRATE
     Dosage: UNK
  10. LEVOCABASTINE [Concomitant]
     Active Substance: LEVOCABASTINE
     Dosage: UNK
  11. MYSER [DIFLUPREDNATE] [Concomitant]
     Dosage: UNK
  12. ARIMIDEX [Concomitant]
     Active Substance: ANASTROZOLE
     Dosage: UNK
  13. SILODOSIN [Concomitant]
     Active Substance: SILODOSIN
     Dosage: UNK
  14. BROTIZOLAM [Concomitant]
     Active Substance: BROTIZOLAM
     Dosage: UNK
  15. LOXOPROFEN SODIUM [Concomitant]
     Active Substance: LOXOPROFEN SODIUM
     Dosage: UNK
  16. GASLON [Concomitant]
     Active Substance: IRSOGLADINE MALEATE
     Dosage: UNK

REACTIONS (3)
  - Interstitial lung disease [Recovered/Resolved]
  - Respiratory distress [Unknown]
  - Pyrexia [Unknown]

NARRATIVE: CASE EVENT DATE: 20220104
